FAERS Safety Report 6760776-5 (Version None)
Quarter: 2010Q2

REPORT INFORMATION
  Report Type: 
  Country: None (occurrence: None)
  Receive Date: 20100604
  Receipt Date: 20100520
  Transmission Date: 20101027
  Serious: Yes (Hospitalization)
  Sender: FDA-Public Use
  Company Number: 7001047

PATIENT
  Age: 42 Year
  Sex: Female
  Weight: 96 kg

DRUGS (1)
  1. REBIF [Suspect]
     Indication: MULTIPLE SCLEROSIS
     Dosage: 44 MCG, 3 IN 1 WK, SUBCUTANEOUS
     Route: 058
     Dates: start: 20081111, end: 20100501

REACTIONS (5)
  - ENDOMETRIAL HYPERTROPHY [None]
  - LYMPHADENOPATHY [None]
  - MUSCLE SPASMS [None]
  - OVARIAN MASS [None]
  - POLYMENORRHOEA [None]
